FAERS Safety Report 16312143 (Version 1)
Quarter: 2019Q2

REPORT INFORMATION
  Report Type: Spontaneous
  Country: IT (occurrence: IT)
  Receive Date: 20190515
  Receipt Date: 20190515
  Transmission Date: 20190711
  Serious: Yes (Other)
  Sender: FDA-Public Use
  Company Number: IT-ACCORD-127129

PATIENT
  Age: 86 Year
  Sex: Male

DRUGS (3)
  1. DILATREND [Concomitant]
     Active Substance: CARVEDILOL
  2. FUROSEMIDE. [Suspect]
     Active Substance: FUROSEMIDE
     Indication: RENAL FAILURE
     Route: 048
     Dates: start: 20170101, end: 20180125
  3. INSULIN [Concomitant]
     Active Substance: INSULIN NOS

REACTIONS (5)
  - Dehydration [Recovering/Resolving]
  - Malaise [Recovering/Resolving]
  - Asthenia [Recovering/Resolving]
  - Somnolence [Recovering/Resolving]
  - Hypokalaemia [Recovering/Resolving]

NARRATIVE: CASE EVENT DATE: 20180125
